FAERS Safety Report 6414811-4 (Version None)
Quarter: 2009Q4

REPORT INFORMATION
  Report Type: 
  Country: None (occurrence: None)
  Receive Date: 20091026
  Receipt Date: 20091026
  Transmission Date: 20100525
  Serious: No
  Sender: FDA-Public Use
  Company Number: None

PATIENT
  Age: 30 Year
  Sex: Female
  Weight: 52.1637 kg

DRUGS (1)
  1. REMERON [Suspect]
     Indication: SEASONAL AFFECTIVE DISORDER
     Dosage: 60MG ONCE DAILY PO
     Route: 048
     Dates: start: 20080201, end: 20080329

REACTIONS (6)
  - MUSCLE ATROPHY [None]
  - MUSCLE INJURY [None]
  - MUSCULAR WEAKNESS [None]
  - MYALGIA [None]
  - NERVE INJURY [None]
  - SENSORY LOSS [None]
